FAERS Safety Report 25900722 (Version 1)
Quarter: 2025Q4

REPORT INFORMATION
  Report Type: Spontaneous
  Country: US (occurrence: None)
  Receive Date: 20251008
  Receipt Date: 20251008
  Transmission Date: 20260118
  Serious: Yes (Disabling)
  Sender: FDA-CTU
  Company Number: None

PATIENT
  Age: 67 Year
  Sex: Male
  Weight: 72 kg

DRUGS (3)
  1. DUPIXENT [Suspect]
     Active Substance: DUPILUMAB
     Indication: Eczema
     Dosage: ?OTHER QUANTITY : 2 INJECTION(S)?OTHER FREQUENCY : ONE EVERY 2 WEEK?OTHER ROUTE : INJECT TO LEG;?
     Route: 050
     Dates: start: 20250812, end: 20250921
  2. ATORVASTATIN [Concomitant]
     Active Substance: ATORVASTATIN
  3. VITAMIN D [Concomitant]
     Active Substance: VITAMIN D NOS

REACTIONS (4)
  - Eye pruritus [None]
  - Eye pain [None]
  - Eye swelling [None]
  - Therapy cessation [None]

NARRATIVE: CASE EVENT DATE: 20250806
